FAERS Safety Report 5347485-4 (Version None)
Quarter: 2007Q2

REPORT INFORMATION
  Report Type: 
  Country: None (occurrence: None)
  Receive Date: 20070606
  Receipt Date: 20070528
  Transmission Date: 20071010
  Serious: Yes (Hospitalization, Other)
  Sender: FDA-Public Use
  Company Number: PHEH2007US08043

PATIENT
  Sex: Female

DRUGS (1)
  1. ZELNORM [Suspect]
     Indication: ABDOMINAL PAIN
     Dosage: UNK, BID
     Dates: start: 20060217, end: 20060701

REACTIONS (10)
  - ATRIAL FIBRILLATION [None]
  - CARDIAC DISORDER [None]
  - CARDIAC VALVE DISEASE [None]
  - CONDITION AGGRAVATED [None]
  - DYSPEPSIA [None]
  - DYSPNOEA [None]
  - HEART RATE IRREGULAR [None]
  - HEART VALVE OPERATION [None]
  - NAUSEA [None]
  - PALPITATIONS [None]
